FAERS Safety Report 7514025-0 (Version None)
Quarter: 2011Q2

REPORT INFORMATION
  Report Type: 
  Country: None (occurrence: None)
  Receive Date: 20110531
  Receipt Date: 20100212
  Transmission Date: 20111010
  Serious: No
  Sender: FDA-Public Use
  Company Number: US-BAYER-201014162NA

PATIENT
  Age: 35 Year
  Sex: Male
  Weight: 77.273 kg

DRUGS (1)
  1. AVELOX [Suspect]
     Indication: SINUSITIS
     Dosage: 400 MG, UNK
     Route: 048
     Dates: start: 20100212, end: 20100212

REACTIONS (3)
  - PARAESTHESIA [None]
  - MUSCULAR WEAKNESS [None]
  - HYPOAESTHESIA [None]
